FAERS Safety Report 7680764-4 (Version None)
Quarter: 2011Q3

REPORT INFORMATION
  Report Type: 
  Country: None (occurrence: None)
  Receive Date: 20110812
  Receipt Date: 20110801
  Transmission Date: 20111222
  Serious: Yes (Hospitalization)
  Sender: FDA-Public Use
  Company Number: US-JNJFOC-20080900669

PATIENT
  Sex: Male
  Weight: 65.6 kg

DRUGS (4)
  1. INFLIXIMAB [Suspect]
     Indication: CROHN'S DISEASE
     Dosage: 10 MG/KG; TOTAL 18 DOSES
     Route: 042
     Dates: end: 20071228
  2. INFLIXIMAB [Suspect]
     Route: 042
     Dates: start: 20050104
  3. HUMIRA [Concomitant]
  4. PREDNISONE [Concomitant]

REACTIONS (2)
  - PERIRECTAL ABSCESS [None]
  - CROHN'S DISEASE [None]
